FAERS Safety Report 7570271-1 (Version None)
Quarter: 2011Q2

REPORT INFORMATION
  Report Type: 
  Country: None (occurrence: None)
  Receive Date: 20110624
  Receipt Date: 20110621
  Transmission Date: 20111010
  Serious: Yes (Death)
  Sender: FDA-Public Use
  Company Number: GB-TEVA-287505ISR

PATIENT
  Age: 40 Year
  Sex: Male

DRUGS (2)
  1. ALBUTEROL [Suspect]
  2. CLOZAPINE [Suspect]
     Indication: SCHIZOPHRENIA
     Route: 048
     Dates: start: 20000912

REACTIONS (3)
  - OVERDOSE [None]
  - ASTHMA [None]
  - PNEUMONIA [None]
